FAERS Safety Report 4455251-7 (Version None)
Quarter: 2004Q3

REPORT INFORMATION
  Report Type: 
  Country: None (occurrence: None)
  Receive Date: 20040921
  Receipt Date: 20040517
  Transmission Date: 20050211
  Serious: Yes (Death, Life-Threatening, Hospitalization)
  Sender: FDA-Public Use
  Company Number: DE-MERCK-0405DEU00132

PATIENT
  Age: 93 Year
  Sex: Female
  Weight: 80 kg

DRUGS (4)
  1. AMLODIPINE BESYLATE [Concomitant]
     Indication: HYPERTENSION
     Route: 048
     Dates: start: 19990101, end: 20040419
  2. DIPYRONE [Concomitant]
     Indication: POLYARTHRITIS
     Route: 048
     Dates: start: 20031207, end: 20040419
  3. FUROSEMIDE SODIUM [Concomitant]
     Indication: CARDIAC FAILURE CONGESTIVE
     Route: 048
     Dates: start: 20030101, end: 20040419
  4. VIOXX [Suspect]
     Indication: POLYARTHRITIS
     Route: 048
     Dates: start: 20040225, end: 20040419

REACTIONS (4)
  - ANAEMIA [None]
  - DUODENAL ULCER HAEMORRHAGE [None]
  - GASTRIC ULCER HAEMORRHAGE [None]
  - NERVOUS SYSTEM DISORDER [None]
